FAERS Safety Report 20895280 (Version 9)
Quarter: 2025Q3

REPORT INFORMATION
  Report Type: Spontaneous
  Country: US (occurrence: US)
  Receive Date: 20220531
  Receipt Date: 20250822
  Transmission Date: 20251020
  Serious: No
  Sender: PFIZER
  Company Number: US-PFIZER INC-202101831295

PATIENT
  Age: 65 Year
  Sex: Female

DRUGS (2)
  1. XELJANZ XR [Suspect]
     Active Substance: TOFACITINIB CITRATE
  2. CYANOCOBALAMIN [Concomitant]
     Active Substance: CYANOCOBALAMIN

REACTIONS (7)
  - COVID-19 [Recovered/Resolved]
  - Pharyngeal disorder [Unknown]
  - Speech disorder [Unknown]
  - Memory impairment [Unknown]
  - Hypoacusis [Unknown]
  - Dyspepsia [Recovered/Resolved]
  - Product dose omission issue [Unknown]
